FAERS Safety Report 10968060 (Version 1)
Quarter: 2015Q1

REPORT INFORMATION
  Report Type: Spontaneous
  Country: IT (occurrence: IT)
  Receive Date: 20150330
  Receipt Date: 20150330
  Transmission Date: 20150721
  Serious: Yes (Other)
  Sender: FDA-Public Use
  Company Number: IT-ELI_LILLY_AND_COMPANY-IT201503007029

PATIENT
  Age: 58 Year
  Sex: Female
  Weight: 50 kg

DRUGS (1)
  1. ALIMTA [Suspect]
     Active Substance: PEMETREXED DISODIUM
     Indication: LUNG NEOPLASM MALIGNANT
     Dosage: 700 MG, CYCLICAL
     Route: 042
     Dates: start: 20131011, end: 20150128

REACTIONS (4)
  - Sodium retention [Recovering/Resolving]
  - Pleural effusion [Recovering/Resolving]
  - Cushingoid [Recovering/Resolving]
  - Gravitational oedema [Recovering/Resolving]

NARRATIVE: CASE EVENT DATE: 20150218
